FAERS Safety Report 15201105 (Version 2)
Quarter: 2018Q3

REPORT INFORMATION
  Report Type: Spontaneous
  Country: US (occurrence: US)
  Receive Date: 20180726
  Receipt Date: 20180913
  Transmission Date: 20181010
  Serious: Yes (Other)
  Sender: FDA-Public Use
  Company Number: US-PFIZER INC-2018293613

PATIENT
  Age: 62 Year
  Sex: Female

DRUGS (1)
  1. XELJANZ XR [Suspect]
     Active Substance: TOFACITINIB CITRATE
     Indication: RHEUMATOID ARTHRITIS
     Dosage: 11 MG, 1X/DAY
     Route: 048
     Dates: end: 20180831

REACTIONS (17)
  - Breast inflammation [Unknown]
  - Drug ineffective [Unknown]
  - Decreased appetite [Unknown]
  - Eyelid ptosis [Unknown]
  - Condition aggravated [Unknown]
  - Asthenia [Unknown]
  - Diarrhoea [Unknown]
  - Foot fracture [Unknown]
  - Breast swelling [Unknown]
  - Abdominal pain [Unknown]
  - Muscle spasms [Unknown]
  - Fatigue [Unknown]
  - Chills [Unknown]
  - Eczema [Unknown]
  - Insomnia [Unknown]
  - Pruritus [Unknown]
  - Malaise [Unknown]

NARRATIVE: CASE EVENT DATE: 2018
